FAERS Safety Report 5357599-0 (Version None)
Quarter: 2007Q2

REPORT INFORMATION
  Report Type: 
  Country: None (occurrence: None)
  Receive Date: 20070614
  Receipt Date: 20070606
  Transmission Date: 20071010
  Serious: Yes (Hospitalization)
  Sender: FDA-Public Use
  Company Number: US-ELI_LILLY_AND_COMPANY-US200706001126

PATIENT
  Age: 75 Year
  Sex: Male

DRUGS (2)
  1. HUMALOG [Suspect]
     Indication: DIABETES MELLITUS
     Dates: start: 19980801
  2. HUMALOG [Suspect]
     Dates: start: 19980801

REACTIONS (3)
  - FALL [None]
  - GAIT DISTURBANCE [None]
  - HIP FRACTURE [None]
